FAERS Safety Report 24194938 (Version 1)
Quarter: 2024Q3

REPORT INFORMATION
  Report Type: Spontaneous
  Country: US (occurrence: US)
  Receive Date: 20240809
  Receipt Date: 20240809
  Transmission Date: 20241017
  Serious: Yes (Hospitalization)
  Sender: STANDARD HOMEOPATHIC
  Company Number: US-Standard Homeopathic-2160245

PATIENT
  Age: 9 Month
  Sex: Male

DRUGS (1)
  1. BABY TEETHING (HYLAND HOMEOPATHIC) [Suspect]
     Active Substance: HOMEOPATHICS
     Indication: Oral pain
     Route: 060
     Dates: start: 20240714, end: 20240717

REACTIONS (1)
  - Vomiting [Unknown]
